FAERS Safety Report 15284803 (Version 1)
Quarter: 2018Q4

REPORT INFORMATION
  Report Type: Spontaneous
  Country: FR (occurrence: FR)
  Receive Date: 20180816
  Receipt Date: 20180816
  Transmission Date: 20190204
  Serious: Yes (Hospitalization, Other)
  Sender: FDA-Public Use
  Company Number: FR-PFIZER INC-2018329964

PATIENT
  Age: 51 Year
  Sex: Male
  Weight: 81 kg

DRUGS (15)
  1. NEFOPAM [Suspect]
     Active Substance: NEFOPAM
     Dosage: 320 MG, UNK
     Route: 048
     Dates: start: 20180629, end: 20180629
  2. PREGABALINE [Concomitant]
     Active Substance: PREGABALIN
     Dosage: UNK
  3. DUPHALAC [Concomitant]
     Active Substance: LACTULOSE
     Dosage: UNK
  4. DEXERYL (GLYCEROL AND WHITE SOFT PARAFFIN AND LIQUID PARAFFIN) [Concomitant]
     Active Substance: GLYCERIN\MINERAL OIL\PETROLATUM
     Dosage: UNK
  5. PRINCI B [Concomitant]
     Dosage: UNK
  6. MAGNESPASMYL [Concomitant]
     Dosage: 47.4 MG, UNK
  7. XATRAL [Concomitant]
     Active Substance: ALFUZOSIN
     Dosage: 10 MG, UNK
  8. RAMIPRIL. [Suspect]
     Active Substance: RAMIPRIL
     Dosage: 18.75 MG, UNK
     Route: 048
     Dates: start: 20180629, end: 20180629
  9. LANSOPRAZOLE. [Concomitant]
     Active Substance: LANSOPRAZOLE
     Dosage: UNK
  10. AMLODIPINE [Concomitant]
     Active Substance: AMLODIPINE BESYLATE
     Dosage: UNK
  11. MELATONINE [Concomitant]
     Active Substance: MELATONIN
     Dosage: UNK
  12. KARDEGIC [Concomitant]
     Active Substance: ASPIRIN DL-LYSINE
     Dosage: 75 MG, UNK
  13. ACIDE URSODESOXYCHOLIQUE TEVA [Suspect]
     Active Substance: URSODIOL
     Dosage: 20 MG, UNK
     Route: 048
     Dates: start: 20180629, end: 20180629
  14. BISOCE [Concomitant]
     Active Substance: BISOPROLOL
     Dosage: 5 MG, UNK
  15. TOVIAZ [Concomitant]
     Active Substance: FESOTERODINE FUMARATE
     Dosage: 8 MG, UNK

REACTIONS (2)
  - Suicide attempt [Unknown]
  - Hypotension [Recovered/Resolved]

NARRATIVE: CASE EVENT DATE: 20180629
